FAERS Safety Report 15097628 (Version 3)
Quarter: 2018Q4

REPORT INFORMATION
  Report Type: Spontaneous
  Country: JP (occurrence: JP)
  Receive Date: 20180702
  Receipt Date: 20181206
  Transmission Date: 20190204
  Serious: Yes (Hospitalization)
  Sender: FDA-Public Use
  Company Number: JP-ACTELION-A-CH2017-152478

PATIENT
  Age: 70 Year
  Sex: Female

DRUGS (16)
  1. TRACLEER [Suspect]
     Active Substance: BOSENTAN
     Dosage: 62.5 MG, BID
     Route: 048
     Dates: start: 20140212, end: 20140309
  2. URSO [Concomitant]
     Active Substance: URSODIOL
     Dosage: 100 MG, TID
  3. TRACLEER [Suspect]
     Active Substance: BOSENTAN
     Indication: SCLERODERMA ASSOCIATED DIGITAL ULCER
     Dosage: 125 MG, BID
     Route: 048
     Dates: start: 20140310, end: 20170821
  4. TRACLEER [Suspect]
     Active Substance: BOSENTAN
     Dosage: 62.5 MG, BID
     Route: 048
     Dates: start: 20170822
  5. PLETAAL [Concomitant]
     Active Substance: CILOSTAZOL
  6. PLAVIX [Concomitant]
     Active Substance: CLOPIDOGREL BISULFATE
  7. FIBLAST [Concomitant]
  8. PARIET [Concomitant]
     Active Substance: RABEPRAZOLE SODIUM
  9. URSO [Concomitant]
     Active Substance: URSODIOL
     Dosage: 200 MG, TID
     Route: 048
     Dates: start: 20140626
  10. REVATIO [Concomitant]
     Active Substance: SILDENAFIL CITRATE
  11. ANPLAG [Concomitant]
     Active Substance: SARPOGRELATE
  12. CARELOAD [Concomitant]
     Active Substance: BERAPROST SODIUM
  13. ADALAT [Concomitant]
     Active Substance: NIFEDIPINE
  14. PROTOPIC [Concomitant]
     Active Substance: TACROLIMUS
  15. U-PASTA [Concomitant]
  16. GASMOTIN [Concomitant]
     Active Substance: MOSAPRIDE CITRATE

REACTIONS (8)
  - Blood alkaline phosphatase increased [Not Recovered/Not Resolved]
  - Fine motor skill dysfunction [Recovered/Resolved]
  - Alanine aminotransferase increased [Unknown]
  - Cerebral infarction [Recovered/Resolved]
  - Liver disorder [Unknown]
  - Gamma-glutamyltransferase increased [Not Recovered/Not Resolved]
  - Cerebral arteriosclerosis [Recovered/Resolved]
  - Dyslalia [Recovered/Resolved]

NARRATIVE: CASE EVENT DATE: 20160430
